FAERS Safety Report 23471239 (Version 1)
Quarter: 2024Q1

REPORT INFORMATION
  Report Type: Report from Study
  Country: US (occurrence: None)
  Receive Date: 20240202
  Receipt Date: 20240202
  Transmission Date: 20240409
  Serious: Yes (Other)
  Sender: FDA-Public Use
  Company Number: 2024A025257

PATIENT
  Sex: Female

DRUGS (1)
  1. TAGRISSO [Suspect]
     Active Substance: OSIMERTINIB
     Route: 048
     Dates: start: 202212

REACTIONS (15)
  - Sudden hearing loss [Unknown]
  - Oral mucosal blistering [Unknown]
  - Ear infection [Unknown]
  - Dizziness [Unknown]
  - Weight decreased [Unknown]
  - Headache [Unknown]
  - Muscle spasms [Unknown]
  - Visual impairment [Unknown]
  - Oropharyngeal pain [Unknown]
  - Dysphagia [Unknown]
  - Nail discomfort [Unknown]
  - Memory impairment [Unknown]
  - Illness [Unknown]
  - Tinnitus [Unknown]
  - Onychoclasis [Unknown]
